FAERS Safety Report 6649439-4 (Version None)
Quarter: 2010Q1

REPORT INFORMATION
  Report Type: 
  Country: None (occurrence: None)
  Receive Date: 20100322
  Receipt Date: 20100308
  Transmission Date: 20100710
  Serious: Yes (Hospitalization)
  Sender: FDA-Public Use
  Company Number: 232440J01USA

PATIENT
  Age: 25 Year
  Sex: Female
  Weight: 87 kg

DRUGS (5)
  1. REBIF [Suspect]
     Indication: MULTIPLE SCLEROSIS
     Dosage: 44 MCG,3 IN 1 WEEKS, SUBCUTANEOUS
     Route: 058
     Dates: start: 20080309
  2. BIRTH CONTROL (ORAL CONTRACEPTIVE NOS) [Concomitant]
  3. IRON PILLS (IRON) [Concomitant]
  4. CLONAZEPAM [Concomitant]
  5. BLOOD PRESSURE MEDICATION (ANTHYPERTENSIVES) [Concomitant]

REACTIONS (1)
  - UTERINE LEIOMYOMA [None]
